FAERS Safety Report 11593241 (Version 1)
Quarter: 2015Q4

REPORT INFORMATION
  Report Type: Spontaneous
  Country: US (occurrence: US)
  Receive Date: 20151005
  Receipt Date: 20151005
  Transmission Date: 20160304
  Serious: No
  Sender: FDA-Public Use
  Company Number: ALCN2015US005940

PATIENT
  Sex: Male

DRUGS (1)
  1. PILOCARPINE HCL [Suspect]
     Active Substance: PILOCARPINE HYDROCHLORIDE
     Indication: HYPERHIDROSIS
     Dosage: 2 GTT, UNK
     Route: 060

REACTIONS (1)
  - Off label use [Unknown]
